FAERS Safety Report 10675852 (Version 2)
Quarter: 2015Q1

REPORT INFORMATION
  Report Type: Spontaneous
  Country: BR (occurrence: BR)
  Receive Date: 20141225
  Receipt Date: 20150112
  Transmission Date: 20150720
  Serious: Yes (Hospitalization)
  Sender: FDA-Public Use
  Company Number: BR-ASTRAZENECA-2014SE97912

PATIENT
  Age: 75 Year
  Sex: Female
  Weight: 64 kg

DRUGS (6)
  1. NEXIUM [Suspect]
     Active Substance: ESOMEPRAZOLE MAGNESIUM
     Indication: HICCUPS
     Route: 048
  2. CRESTOR [Suspect]
     Active Substance: ROSUVASTATIN CALCIUM
     Indication: BLOOD CHOLESTEROL INCREASED
     Dosage: EVERY OTHER DAY OR EVERY 2 DAYS
     Route: 048
  3. SYNTHROID [Concomitant]
     Active Substance: LEVOTHYROXINE SODIUM
     Indication: HYPOTHYROIDISM
     Route: 048
  4. ANGIOPRIL [Concomitant]
     Indication: HYPERTENSION
     Dosage: 2 TABLETS/BY MORNING; 2 TABLETS/AT NIGHT
     Route: 048
  5. NEXIUM [Suspect]
     Active Substance: ESOMEPRAZOLE MAGNESIUM
     Indication: AEROPHAGIA
     Route: 048
  6. ARTROLIVE [Concomitant]
     Active Substance: CHONDROITIN SULFATE (BOVINE)\GLUCOSAMINE SULFATE
     Indication: OSTEOARTHRITIS

REACTIONS (5)
  - Blood cholesterol increased [Recovered/Resolved]
  - Intentional product misuse [Unknown]
  - Off label use [Not Recovered/Not Resolved]
  - Osteoarthritis [Recovered/Resolved]
  - Tremor [Recovering/Resolving]

NARRATIVE: CASE EVENT DATE: 2006
